FAERS Safety Report 9753867 (Version 1)
Quarter: 2013Q4

REPORT INFORMATION
  Report Type: Spontaneous
  Country: US (occurrence: US)
  Receive Date: 20131213
  Receipt Date: 20131213
  Transmission Date: 20140711
  Serious: No
  Sender: FDA-Public Use
  Company Number: US-GILEAD-2010-0027659

PATIENT
  Sex: Female
  Weight: 44.68 kg

DRUGS (30)
  1. LETAIRIS [Suspect]
     Indication: PULMONARY ARTERIAL HYPERTENSION
     Route: 048
     Dates: start: 20100130
  2. GLUCAGON [Concomitant]
  3. DIAZEPAM [Concomitant]
  4. GEMFIBROZIL [Concomitant]
  5. SENOKOT [Concomitant]
  6. TYLENOL [Concomitant]
  7. COUMADIN [Concomitant]
  8. REVATIO [Concomitant]
  9. CLARITIN [Concomitant]
  10. GABAPENTIN [Concomitant]
  11. PAROXETINE [Concomitant]
  12. MAG-OXIDE [Concomitant]
  13. OXYBUTYNIN [Concomitant]
  14. ZINC SULFATE [Concomitant]
  15. VITAMIN C [Concomitant]
  16. OXYCODONE [Concomitant]
  17. LEVOTHYROXINE [Concomitant]
  18. THERAGRAN [Concomitant]
  19. MS CONTIN [Concomitant]
  20. MULTIVITAMIN/ IRON [Concomitant]
  21. BECLOMETHASONE [Concomitant]
  22. EXCEDRIN [Concomitant]
  23. SODIUM CHLORIDE BCTRSTATIC [Concomitant]
  24. AMINO ACID [Concomitant]
  25. MEPERIDINE [Concomitant]
  26. METOCLOPRAMIDE [Concomitant]
  27. MULTIVITAMIN 12 [Concomitant]
  28. NOVOLIN-R [Concomitant]
  29. VITAMIN K [Concomitant]
  30. PRILOSEC [Concomitant]

REACTIONS (1)
  - Gastric disorder [Unknown]
